FAERS Safety Report 23435943 (Version 2)
Quarter: 2024Q1

REPORT INFORMATION
  Report Type: Report from Study
  Country: US (occurrence: US)
  Receive Date: 20240124
  Receipt Date: 20240318
  Transmission Date: 20240409
  Serious: Yes (Death, Other)
  Sender: FDA-Public Use
  Company Number: US-ACADIA PHARMACEUTICALS INC.-ACA-2023-PIM-006137

PATIENT
  Age: 88 Year
  Sex: Male

DRUGS (24)
  1. NUPLAZID [Suspect]
     Active Substance: PIMAVANSERIN TARTRATE
     Indication: Parkinson^s disease psychosis
     Dosage: 34 MILLIGRAM, QD
     Route: 048
     Dates: start: 20231109, end: 20240216
  2. ALPRAZOLAM [Concomitant]
     Active Substance: ALPRAZOLAM
     Dosage: 0.25 MG, ORAL, NIGHTLY
  3. AMANTADINE HYDROCHLORIDE [Concomitant]
     Active Substance: AMANTADINE HYDROCHLORIDE
     Indication: Parkinson^s disease
     Dosage: 100 MILLIGRAM (1 CAPSULE DAILY FOR 3 DAYS, IF NEEDED CAN INCREASE TWICE TO TREAT PD SYMPTOMS)
  4. ASPIRIN [Concomitant]
     Active Substance: ASPIRIN
     Dosage: 81 MILLIGRAM, QD
     Route: 048
  5. CARBIDOPA LEVODOPA [Concomitant]
     Active Substance: CARBIDOPA\LEVODOPA
     Dosage: 25-100MG, EXTENDED RELEASE (TAKE 1 TAB AT 7AM,1 TAB AT 1115, 1 TAB AT 1615 AND 2 TAB HS
  6. CARBIDOPA LEVODOPA [Concomitant]
     Active Substance: CARBIDOPA\LEVODOPA
     Dosage: 25-100MG, TABLET, 2 TABS AT 5AM, 1 TAB AT 7AM, 1 TAB AT 1115, 1 TAB AT 1430, 1 TAB AT 1615, 1 TAB AT
  7. ENTACAPONE [Concomitant]
     Active Substance: ENTACAPONE
     Dosage: 200 MILLIGRAM, QD
     Route: 048
  8. ENTACAPONE [Concomitant]
     Active Substance: ENTACAPONE
     Dosage: 200 MILLIGRAM, ORAL (1 TAB BY MOUTH 2 TIMES A DAY)
  9. NAPROXEN SODIUM [Concomitant]
     Active Substance: NAPROXEN\NAPROXEN SODIUM
     Dosage: ORAL, AS NEEDED
  10. OMEPRAZOLE [Concomitant]
     Active Substance: OMEPRAZOLE
     Dosage: 20 MILLIGRAM, ORAL, 2 TIMES DAILY
  11. PEG 3350 [Concomitant]
     Active Substance: POLYETHYLENE GLYCOL 3350
     Dosage: 17 GRAM, ORAL, DAILY
  12. PROPRANOLOL HYDROCHLORIDE [Concomitant]
     Active Substance: PROPRANOLOL HYDROCHLORIDE
     Dosage: 10 MILLIGRAM, QD(ONE TAB BY MOUTH IN MORNING. IF TOLERATED, INCREASE TO 1 TAB IN THE MORNING AND 1 T
  13. METAMUCIL [Concomitant]
     Active Substance: PLANTAGO SEED
  14. VITAMIN D3 [Concomitant]
     Active Substance: CHOLECALCIFEROL
     Dosage: 1000 MILLIGRAM, BY MOUTH DAILY
  15. FOLIC ACID [Concomitant]
     Active Substance: FOLIC ACID
     Dosage: 500 UNIT (TAKE 1000 MG BY MOUTH DAILY)
  16. KETOCONAZOLE [Concomitant]
     Active Substance: KETOCONAZOLE
     Indication: Pruritus
     Dosage: 2%, 1-3 TIMES MORNINGS A WEEK AS DIRECTED
  17. KETOCONAZOLE [Concomitant]
     Active Substance: KETOCONAZOLE
     Indication: Skin exfoliation
  18. HERBALS\LAVANDULA ANGUSTIFOLIA WHOLE [Concomitant]
     Active Substance: HERBALS\LAVANDULA ANGUSTIFOLIA WHOLE
     Dosage: PILL, DAILY
  19. PSYLLIUM HUSKS [Concomitant]
     Active Substance: PSYLLIUM HUSK
     Dosage: 3.4GM, 1 PACKET, ORAL, DAILY
  20. TRIAMCINOLONE ACETONIDE [Concomitant]
     Active Substance: TRIAMCINOLONE ACETONIDE
     Dosage: 0.1% (1 APPLICATION AS NEEDED BY TOPICAL ROUTE AS DIRECTED FOR 30 DAYS)
  21. CYANOCOBALAMIN [Concomitant]
     Active Substance: CYANOCOBALAMIN
     Dosage: 2000 MILLIGRAM, QD
     Dates: end: 20231229
  22. ASPIRIN [Concomitant]
     Active Substance: ASPIRIN
     Dosage: 81 MILLIGRAM, ORAL, DAILY
  23. ASPARTAME [Concomitant]
     Active Substance: ASPARTAME
     Dosage: 3.4GM, 1 PACKET, ORAL, DAILY
  24. VITAMIN B12 [Concomitant]
     Active Substance: CYANOCOBALAMIN
     Dosage: 2000 MG, ORAL, DAILY
     Dates: end: 20231229

REACTIONS (5)
  - Death [Recovered/Resolved]
  - Asthenia [Recovered/Resolved]
  - Lethargy [Not Recovered/Not Resolved]
  - Urinary tract infection [Recovered/Resolved]
  - Dehydration [Not Recovered/Not Resolved]

NARRATIVE: CASE EVENT DATE: 20231224
